FAERS Safety Report 13586235 (Version 1)
Quarter: 2017Q2

REPORT INFORMATION
  Report Type: Spontaneous
  Country: JP (occurrence: JP)
  Receive Date: 20170526
  Receipt Date: 20170526
  Transmission Date: 20170830
  Serious: Yes (Death, Other)
  Sender: FDA-Public Use
  Company Number: JP-MYLANLABS-2017M1031524

PATIENT

DRUGS (12)
  1. LEVOFOLINIC ACID [Concomitant]
     Active Substance: LEVOLEUCOVORIN
     Indication: RECTAL CANCER METASTATIC
     Dosage: 200 MG/M2 ON DAY 1
     Route: 042
  2. OXALIPLATIN. [Suspect]
     Active Substance: OXALIPLATIN
     Indication: RECTAL CANCER METASTATIC
     Dosage: 85 MG/M2
     Route: 042
  3. CALCIUM LEVOFOLINATE [Suspect]
     Active Substance: LEVOLEUCOVORIN CALCIUM
     Indication: RECTAL CANCER METASTATIC
     Dosage: 200 MG/M2 ON DAY 1
     Route: 042
  4. FLUOROURACIL. [Suspect]
     Active Substance: FLUOROURACIL
     Dosage: 2400 MG/M2 OVER 46HRS, EVERY TWO WEEKS
     Route: 041
  5. FLUOROURACIL. [Concomitant]
     Active Substance: FLUOROURACIL
     Dosage: 2400 MG/M2 OVER 46HRS, EVERY TWO WEEKS
     Route: 041
  6. FLUOROURACIL. [Concomitant]
     Active Substance: FLUOROURACIL
     Indication: RECTAL CANCER METASTATIC
     Dosage: 400 MG/M2 OVER 46HRS, EVERY TWO WEEKS; FOLLOWED BY IV INFUSION OF 2400 MG/M2
     Route: 040
  7. FLUOROURACIL. [Suspect]
     Active Substance: FLUOROURACIL
     Indication: RECTAL CANCER METASTATIC
     Dosage: 400 MG/M2 OVER 46HRS, EVERY TWO WEEKS; FOLLOWED BY IV INFUSION OF 2400 MG/M2
     Route: 040
  8. PANITUMUMAB [Suspect]
     Active Substance: PANITUMUMAB
     Indication: RECTAL CANCER METASTATIC
     Dosage: 6 MG/KG
     Route: 042
  9. IRINOTECAN [Concomitant]
     Active Substance: IRINOTECAN
     Indication: RECTAL CANCER METASTATIC
     Dosage: 400 MG/M2
     Route: 042
  10. BEVACIZUMAB [Suspect]
     Active Substance: BEVACIZUMAB
     Indication: RECTAL CANCER METASTATIC
     Dosage: 85 MG/M2
     Route: 042
  11. CETUXIMAB. [Concomitant]
     Active Substance: CETUXIMAB
     Indication: RECTAL CANCER METASTATIC
     Dosage: 400 MG/M2 FIRST INFUSION; FOLLOWED BY 250 MG/M2 WEEKLY
     Route: 042
  12. CETUXIMAB. [Concomitant]
     Active Substance: CETUXIMAB
     Dosage: 250 MG/M2 WEEKLY
     Route: 042

REACTIONS (9)
  - Paronychia [Unknown]
  - Hypomagnesaemia [Unknown]
  - Haemorrhage [Fatal]
  - Anaemia [Unknown]
  - Neutrophil count decreased [Unknown]
  - Fatigue [Unknown]
  - Neuropathy peripheral [Unknown]
  - Rash [Unknown]
  - Platelet count decreased [Unknown]
